FAERS Safety Report 12608121 (Version 1)
Quarter: 2016Q3

REPORT INFORMATION
  Report Type: Spontaneous
  Country: PT (occurrence: FR)
  Receive Date: 20160729
  Receipt Date: 20160729
  Transmission Date: 20161109
  Serious: Yes (Hospitalization, Other)
  Sender: FDA-Public Use
  Company Number: PT-SUNOVION-2016SUN001788

PATIENT

DRUGS (8)
  1. VIMPAT [Concomitant]
     Active Substance: LACOSAMIDE
     Dosage: 200 MG, BID
  2. ZEBINIX [Suspect]
     Active Substance: ESLICARBAZEPINE ACETATE
     Dosage: 800 UNK, UNK
     Route: 048
     Dates: start: 20151210
  3. ZEBINIX [Suspect]
     Active Substance: ESLICARBAZEPINE ACETATE
     Dosage: 400 MG, QD
     Route: 048
     Dates: start: 2016, end: 20160616
  4. VIMPAT [Concomitant]
     Active Substance: LACOSAMIDE
     Dosage: 150 MG, BID
     Dates: start: 20160616
  5. ZEBINIX [Suspect]
     Active Substance: ESLICARBAZEPINE ACETATE
     Dosage: 400 MG, QD
     Route: 048
     Dates: start: 20150604
  6. MACROGOL [Concomitant]
     Active Substance: POLYETHYLENE GLYCOLS
     Dosage: UNK
  7. EUPANTOL [Concomitant]
     Active Substance: PANTOPRAZOLE SODIUM
     Dosage: UNK
  8. DIFFU-K [Concomitant]
     Active Substance: POTASSIUM CHLORIDE
     Dosage: UNK

REACTIONS (2)
  - Pneumonia aspiration [Unknown]
  - Hiccups [Recovered/Resolved]

NARRATIVE: CASE EVENT DATE: 20160109
